FAERS Safety Report 7822725-8 (Version None)
Quarter: 2011Q4

REPORT INFORMATION
  Report Type: 
  Country: None (occurrence: None)
  Receive Date: 20111018
  Receipt Date: 20110922
  Transmission Date: 20120403
  Serious: Yes (Death, Hospitalization)
  Sender: FDA-Public Use
  Company Number: FR-ROCHE-GNE297247

PATIENT
  Sex: Female

DRUGS (1)
  1. RANIBIZUMAB [Suspect]
     Indication: AGE-RELATED MACULAR DEGENERATION
     Dosage: 0.5 MG, UNK
     Route: 050
     Dates: start: 20091001

REACTIONS (3)
  - ARRHYTHMIA [None]
  - CARDIAC DISORDER [None]
  - DEATH [None]
